FAERS Safety Report 20634540 (Version 2)
Quarter: 2022Q2

REPORT INFORMATION
  Report Type: Spontaneous
  Country: US (occurrence: US)
  Receive Date: 20220325
  Receipt Date: 20220408
  Transmission Date: 20220720
  Serious: Yes (Hospitalization)
  Sender: FDA-Public Use
  Company Number: US-UNITED THERAPEUTICS-UNT-2022-006382

PATIENT
  Age: 23 Year
  Sex: Female
  Weight: 53.061 kg

DRUGS (4)
  1. REMODULIN [Suspect]
     Active Substance: TREPROSTINIL
     Indication: Pulmonary arterial hypertension
     Dosage: UNK UNK, CONTINUING
     Route: 041
     Dates: start: 20140703
  2. REMODULIN [Suspect]
     Active Substance: TREPROSTINIL
     Dosage: 0.116 ?G/KG, CONTINUING
     Route: 041
  3. REMODULIN [Suspect]
     Active Substance: TREPROSTINIL
     Dosage: 0.12 ?G/KG, CONTINUING
     Route: 041
  4. ADCIRCA [Concomitant]
     Active Substance: TADALAFIL
     Indication: Pulmonary arterial hypertension
     Dosage: UNK
     Route: 065

REACTIONS (4)
  - Catheter site infection [Unknown]
  - Dermatitis contact [Unknown]
  - Catheter site discharge [Unknown]
  - Catheter site erythema [Unknown]

NARRATIVE: CASE EVENT DATE: 20220331
